FAERS Safety Report 23311489 (Version 1)
Quarter: 2023Q4

REPORT INFORMATION
  Report Type: Spontaneous
  Country: DE (occurrence: DE)
  Receive Date: 20231219
  Receipt Date: 20231219
  Transmission Date: 20240109
  Serious: Yes (Hospitalization, Disabling, Other)
  Sender: FDA-Public Use
  Company Number: DE-BRISTOL-MYERS SQUIBB COMPANY-2023-163381

PATIENT
  Age: 30 Year
  Sex: Female
  Weight: 60 kg

DRUGS (2)
  1. ZEPOSIA [Suspect]
     Active Substance: OZANIMOD HYDROCHLORIDE
     Indication: Multiple sclerosis
     Dosage: DOSE : UNAV.;     FREQ : UNAV.
     Route: 048
     Dates: start: 202110, end: 202204
  2. ESCITALOPRAM [Concomitant]
     Active Substance: ESCITALOPRAM OXALATE
     Indication: Depression
     Route: 048

REACTIONS (10)
  - Immune reconstitution inflammatory syndrome [Unknown]
  - Staphylococcal bacteraemia [Unknown]
  - Urinary tract infection [Unknown]
  - Subarachnoid haemorrhage [Unknown]
  - Hydrocephalus [Unknown]
  - Brain oedema [Unknown]
  - Cerebellar infarction [Unknown]
  - Leukopenia [Unknown]
  - COVID-19 [Unknown]
  - Ruptured cerebral aneurysm [Unknown]

NARRATIVE: CASE EVENT DATE: 20220201
